FAERS Safety Report 5297839-X (Version None)
Quarter: 2007Q2

REPORT INFORMATION
  Report Type: 
  Country: None (occurrence: None)
  Receive Date: 20070406
  Receipt Date: 20070327
  Transmission Date: 20071010
  Serious: Yes (Life-Threatening)
  Sender: FDA-Public Use
  Company Number: 07H-167-0312344-00

PATIENT
  Age: 62 Year
  Sex: Female
  Weight: 65 kg

DRUGS (8)
  1. ONDANSETRON INJECTION USP 2 MG/ML, 40 MG/20 ML MULTI DOSE VIAL (ONDANS [Suspect]
  2. PROPOFOL [Suspect]
  3. DEXAMETHASONE TAB [Suspect]
  4. FENTANYL [Suspect]
  5. SUXAMETHONIUM (SUXAMETHONIUM) [Suspect]
     Indication: HYPOTONIA
     Dosage: 100 MG
  6. FUROSEMIDE [Concomitant]
  7. SIMVASTATIN [Concomitant]
  8. VENTOLIN [Concomitant]

REACTIONS (1)
  - CARDIAC ARREST [None]
